FAERS Safety Report 4278974-1 (Version None)
Quarter: 2004Q1

REPORT INFORMATION
  Report Type: 
  Country: None (occurrence: None)
  Receive Date: 20040126
  Receipt Date: 20040121
  Transmission Date: 20041129
  Serious: Yes (Hospitalization)
  Sender: FDA-Public Use
  Company Number: WAES 0401GBR00173

PATIENT
  Age: 68 Year
  Sex: Female

DRUGS (2)
  1. FOSAMAX [Suspect]
     Indication: OSTEOPOROSIS POSTMENOPAUSAL
     Route: 048
     Dates: start: 20011025, end: 20011105
  2. INFLUENZA VIRUS VACCINE (UNSPECIFIED) [Concomitant]
     Dates: start: 20011016

REACTIONS (1)
  - ATRIAL FIBRILLATION [None]
